FAERS Safety Report 9614423 (Version 1)
Quarter: 2013Q4

REPORT INFORMATION
  Report Type: Spontaneous
  Country: FR (occurrence: FR)
  Receive Date: 20131011
  Receipt Date: 20131011
  Transmission Date: 20140711
  Serious: Yes (Hospitalization)
  Sender: FDA-Public Use
  Company Number: FR-SA-2013SA097927

PATIENT
  Age: 73 Year
  Sex: Female

DRUGS (13)
  1. LANTUS [Suspect]
     Indication: DIABETES MELLITUS
     Dosage: DOSE:14 UNIT(S)
     Route: 058
  2. TOPALGIC [Suspect]
     Indication: PAIN
     Dosage: DOSE:1 UNIT(S)
     Route: 048
     Dates: start: 201208, end: 20120916
  3. BI-TILDIEM [Concomitant]
  4. CETIRIZINE [Concomitant]
  5. EFFEXOR [Concomitant]
  6. KALEORID [Concomitant]
  7. SODIUM CHLORIDE [Concomitant]
     Dosage: EYE SOLUTION
  8. LASILIX [Concomitant]
  9. NATISPRAY [Concomitant]
  10. PREVISCAN [Concomitant]
  11. SERESTA [Concomitant]
  12. TRIATEC [Concomitant]
  13. PARIET [Concomitant]

REACTIONS (3)
  - Fall [Unknown]
  - Drug interaction [Unknown]
  - Hypoglycaemia [Recovered/Resolved]
